FAERS Safety Report 13679834 (Version 1)
Quarter: 2017Q2

REPORT INFORMATION
  Report Type: Spontaneous
  Country: CA (occurrence: CA)
  Receive Date: 20170622
  Receipt Date: 20170622
  Transmission Date: 20170830
  Serious: Yes (Other)
  Sender: FDA-Public Use
  Company Number: CA-BAUSCH-BL-2017-019272

PATIENT
  Age: 36 Year
  Sex: Female

DRUGS (2)
  1. PROTOPIC [Concomitant]
     Active Substance: TACROLIMUS
     Indication: PRODUCT USED FOR UNKNOWN INDICATION
  2. METRONIDAZOLE. [Suspect]
     Active Substance: METRONIDAZOLE
     Indication: SKIN INFECTION
     Route: 048

REACTIONS (12)
  - Hemianopia [Unknown]
  - Somnolence [Unknown]
  - Hypogeusia [Unknown]
  - Depressed mood [Unknown]
  - Asthenia [Unknown]
  - Feeling abnormal [Unknown]
  - Oral mucosal discolouration [Unknown]
  - Dysgeusia [Unknown]
  - Abdominal discomfort [Unknown]
  - Nausea [Unknown]
  - Fatigue [Unknown]
  - Vision blurred [Unknown]
